FAERS Safety Report 6767341-4 (Version None)
Quarter: 2010Q2

REPORT INFORMATION
  Report Type: 
  Country: None (occurrence: None)
  Receive Date: 20100611
  Receipt Date: 20100611
  Transmission Date: 20101027
  Serious: Yes (Hospitalization)
  Sender: FDA-Public Use
  Company Number: None

PATIENT
  Sex: Female
  Weight: 78.4723 kg

DRUGS (1)
  1. SUMATRIPTAN SUCCINATE [Suspect]
     Indication: MIGRAINE
     Dosage: 1 TABLET AT ONSET OF HEADAC PO AS LONG AS NEEDED
     Route: 048

REACTIONS (4)
  - CONDITION AGGRAVATED [None]
  - MIGRAINE [None]
  - NO THERAPEUTIC RESPONSE [None]
  - PRODUCT SHAPE ISSUE [None]
